FAERS Safety Report 7581721-9 (Version None)
Quarter: 2011Q2

REPORT INFORMATION
  Report Type: 
  Country: None (occurrence: None)
  Receive Date: 20110629
  Receipt Date: 20110615
  Transmission Date: 20111010
  Serious: Yes (Hospitalization, Other)
  Sender: FDA-Public Use
  Company Number: US-BAYER-2011-008144

PATIENT
  Sex: Female

DRUGS (4)
  1. ANTI-ASTHMATICS [Concomitant]
     Indication: ASTHMA
  2. YAZ [Suspect]
     Indication: ACNE
  3. ANTIMIGRAINE PREPARATIONS [Concomitant]
     Indication: MIGRAINE
  4. NSAID'S [Concomitant]

REACTIONS (3)
  - CEREBRAL INFARCTION [None]
  - PAIN [None]
  - CEREBROVASCULAR ACCIDENT [None]
